FAERS Safety Report 5718102-6 (Version None)
Quarter: 2008Q2

REPORT INFORMATION
  Report Type: 
  Country: None (occurrence: None)
  Receive Date: 20080425
  Receipt Date: 20080421
  Transmission Date: 20081010
  Serious: Yes (Death, Hospitalization)
  Sender: FDA-Public Use
  Company Number: NL-TEVA-170437ISR

PATIENT
  Age: 37 Year
  Sex: Female

DRUGS (1)
  1. PAROXETINE HCL [Suspect]
     Route: 048

REACTIONS (3)
  - COMPLETED SUICIDE [None]
  - DEPRESSION [None]
  - PRE-ECLAMPSIA [None]
